FAERS Safety Report 20730343 (Version 1)
Quarter: 2022Q2

REPORT INFORMATION
  Report Type: Spontaneous
  Country: IN (occurrence: IN)
  Receive Date: 20220420
  Receipt Date: 20220420
  Transmission Date: 20220721
  Serious: Yes (Death, Other)
  Sender: FDA-Public Use
  Company Number: IN-PFIZER INC-202101276156

PATIENT
  Age: 65 Year
  Sex: Male

DRUGS (5)
  1. LORLATINIB [Suspect]
     Active Substance: LORLATINIB
     Dosage: 100 MG, 1X/DAY
     Route: 048
     Dates: start: 20200824, end: 202109
  2. DEXA [BETAMETHASONE] [Concomitant]
     Dosage: 8 MG, 2X/DAY
  3. LEVETIRACETAM [Concomitant]
     Active Substance: LEVETIRACETAM
     Dosage: 500 MG, 2X/DAY
  4. MINERALS\VITAMINS [Concomitant]
     Active Substance: MINERALS\VITAMINS
     Dosage: 1 DF, DAILY
  5. ZOLDONAT [Concomitant]
     Dosage: UNK

REACTIONS (11)
  - Death [Fatal]
  - Blood creatinine increased [Unknown]
  - Platelet count decreased [Unknown]
  - Back pain [Unknown]
  - Swelling face [Unknown]
  - Peripheral swelling [Unknown]
  - Blood urea increased [Unknown]
  - Blood iron increased [Unknown]
  - Iron binding capacity total decreased [Unknown]
  - Blood urine present [Unknown]
  - Pyuria [Unknown]

NARRATIVE: CASE EVENT DATE: 20200905
